FAERS Safety Report 8533948-7 (Version None)
Quarter: 2012Q3

REPORT INFORMATION
  Report Type: 
  Country: None (occurrence: None)
  Receive Date: 20120724
  Receipt Date: 20120719
  Transmission Date: 20120928
  Serious: Yes (Hospitalization)
  Sender: FDA-Public Use
  Company Number: US-JNJFOC-20120705806

PATIENT
  Sex: Male
  Weight: 54.4 kg

DRUGS (8)
  1. REMICADE [Suspect]
     Route: 042
     Dates: start: 20080514, end: 20081223
  2. REMICADE [Suspect]
     Dosage: #3 DOSE OF RESTART
     Route: 042
     Dates: start: 20120529
  3. THALIDOMIDE [Concomitant]
  4. ANTIBIOTICS [Concomitant]
  5. REMICADE [Suspect]
     Indication: CROHN'S DISEASE
     Route: 042
  6. METHOTREXATE [Concomitant]
  7. FOLIC ACID [Concomitant]
  8. VITAMIN D [Concomitant]

REACTIONS (1)
  - LYME DISEASE [None]
